FAERS Safety Report 15479609 (Version 2)
Quarter: 2019Q2

REPORT INFORMATION
  Report Type: Spontaneous
  Country: IT (occurrence: IT)
  Receive Date: 20181009
  Receipt Date: 20190429
  Transmission Date: 20190711
  Serious: Yes (Other)
  Sender: FDA-Public Use
  Company Number: IT-MYLANLABS-2018M1074272

PATIENT
  Age: 26 Year
  Sex: Female

DRUGS (1)
  1. TRAMADOL. [Suspect]
     Active Substance: TRAMADOL
     Indication: PAIN
     Dosage: UNK
     Route: 048
     Dates: end: 20171201

REACTIONS (4)
  - Dysuria [Unknown]
  - Urinary retention [Unknown]
  - Abdominal pain [Unknown]
  - Polydipsia [Unknown]

NARRATIVE: CASE EVENT DATE: 20171130
